FAERS Safety Report 7308676-6 (Version None)
Quarter: 2011Q1

REPORT INFORMATION
  Report Type: 
  Country: None (occurrence: None)
  Receive Date: 20110223
  Receipt Date: 20110209
  Transmission Date: 20110831
  Serious: Yes (Other)
  Sender: FDA-Public Use
  Company Number: PHHY2011US10430

PATIENT
  Age: 39 Year
  Sex: Female

DRUGS (5)
  1. PRENATAL VITAMINS [Concomitant]
  2. NASONEX [Concomitant]
  3. SINGULAIR [Concomitant]
  4. VALTURNA [Suspect]
     Dosage: 300 MG ALIS AND 320 MG VALS
     Route: 048
  5. VALTURNA [Suspect]
     Indication: HYPERTENSION
     Dosage: 150 MG ALIS AND 160 MG VALS
     Route: 048

REACTIONS (5)
  - SWELLING [None]
  - FLUID RETENTION [None]
  - WEIGHT INCREASED [None]
  - PALPITATIONS [None]
  - ABDOMINAL DISTENSION [None]
